FAERS Safety Report 23501209 (Version 1)
Quarter: 2024Q1

REPORT INFORMATION
  Report Type: Other
  Country: CN (occurrence: None)
  Receive Date: 20240208
  Receipt Date: 20240208
  Transmission Date: 20240410
  Serious: Yes (Other)
  Sender: FDA-Public Use
  Company Number: CN-ROCHE-3503559

PATIENT
  Age: 33 Year
  Sex: Female

DRUGS (12)
  1. ALECTINIB [Suspect]
     Active Substance: ALECTINIB
     Indication: Non-small cell lung cancer
     Route: 048
  2. BEVACIZUMAB [Suspect]
     Active Substance: BEVACIZUMAB
     Indication: Non-small cell lung cancer
     Route: 065
  3. PEMETREXED [Suspect]
     Active Substance: PEMETREXED
     Indication: Non-small cell lung cancer
     Route: 065
  4. CARBOPLATIN [Suspect]
     Active Substance: CARBOPLATIN
     Indication: Non-small cell lung cancer
     Route: 065
  5. DOCETAXEL [Suspect]
     Active Substance: DOCETAXEL\DOCETAXEL ANHYDROUS
     Indication: Non-small cell lung cancer
     Route: 065
  6. TEMOZOLOMIDE [Suspect]
     Active Substance: TEMOZOLOMIDE
     Indication: Non-small cell lung cancer
     Route: 065
  7. INVESTIGATIONAL PRODUCT [Suspect]
     Active Substance: INVESTIGATIONAL PRODUCT
     Indication: Non-small cell lung cancer
     Route: 048
  8. CRIZOTINIB [Concomitant]
     Active Substance: CRIZOTINIB
  9. CATEQUENTINIB [Concomitant]
     Active Substance: CATEQUENTINIB
  10. ENSARTINIB [Concomitant]
     Active Substance: ENSARTINIB
  11. PACLITAXEL [Concomitant]
     Active Substance: PACLITAXEL
  12. LORLATINIB [Concomitant]
     Active Substance: LORLATINIB

REACTIONS (2)
  - Metastases to central nervous system [Unknown]
  - Disease progression [Unknown]

NARRATIVE: CASE EVENT DATE: 20220524
